FAERS Safety Report 11891952 (Version 1)
Quarter: 2016Q1

REPORT INFORMATION
  Report Type: Spontaneous
  Country: US (occurrence: None)
  Receive Date: 20160105
  Receipt Date: 20160105
  Transmission Date: 20160526
  Serious: Yes (Other)
  Sender: FDA-Public Use
  Company Number: None

PATIENT
  Age: 68 Year
  Sex: Male
  Weight: 108.86 kg

DRUGS (12)
  1. MULTI-VITAMIN [Concomitant]
     Active Substance: .ALPHA.-TOCOPHEROL ACETATE, DL-\ASCORBIC ACID\CYANOCOBALAMIN\FLUORIDE ION\FOLIC ACID\NIACIN\PYRIDOXINE\RIBOFLAVIN\THIAMINE\VITAMIN A\VITAMIN D
  2. ENTERIC ASPIRIN 325 MG [Concomitant]
  3. VITAMIN D3 [Concomitant]
     Active Substance: CHOLECALCIFEROL
  4. TYLENOL [Concomitant]
     Active Substance: ACETAMINOPHEN
  5. IMDUR GENERIC [Concomitant]
  6. GLIPIZIDE. [Concomitant]
     Active Substance: GLIPIZIDE
  7. LIPITOR [Concomitant]
     Active Substance: ATORVASTATIN CALCIUM
  8. TAMSULOSIN [Concomitant]
     Active Substance: TAMSULOSIN
  9. ATENOLOL. [Concomitant]
     Active Substance: ATENOLOL
  10. METFORMIN [Concomitant]
     Active Substance: METFORMIN HYDROCHLORIDE
  11. VALSARTAN. [Concomitant]
     Active Substance: VALSARTAN
  12. MACROBID [Suspect]
     Active Substance: NITROFURANTOIN\NITROFURANTOIN MONOHYDRATE
     Indication: CYSTITIS
     Route: 048

REACTIONS (5)
  - Abdominal discomfort [None]
  - Flatulence [None]
  - Headache [None]
  - Diarrhoea [None]
  - Nausea [None]

NARRATIVE: CASE EVENT DATE: 20160103
